FAERS Safety Report 13603427 (Version 2)
Quarter: 2017Q2

REPORT INFORMATION
  Report Type: Report from Study
  Country: None (occurrence: US)
  Receive Date: 20170601
  Receipt Date: 20170602
  Transmission Date: 20170830
  Serious: Yes (Other)
  Sender: FDA-Public Use
  Company Number: US-ABBVIE-17P-163-1994302-00

PATIENT
  Sex: Male

DRUGS (2)
  1. RIBAVIRIN. [Concomitant]
     Active Substance: RIBAVIRIN
     Indication: CHRONIC HEPATITIS C
  2. VIEKIRA PAK [Suspect]
     Active Substance: DASABUVIR\OMBITASVIR\PARITAPREVIR\RITONAVIR
     Indication: CHRONIC HEPATITIS C
     Dosage: 2 PINK IN AM; 1 BEIGE IN AM AND PM
     Route: 048
     Dates: start: 20170424

REACTIONS (7)
  - Small intestinal obstruction [Unknown]
  - Intussusception [Unknown]
  - Vomiting [Unknown]
  - Wrong technique in product usage process [Unknown]
  - Fluid intake reduced [Unknown]
  - Drug intolerance [Unknown]
  - Hypophagia [Unknown]
